FAERS Safety Report 17050531 (Version 1)
Quarter: 2019Q4

REPORT INFORMATION
  Report Type: Spontaneous
  Country: DE (occurrence: DE)
  Receive Date: 20191119
  Receipt Date: 20191119
  Transmission Date: 20200122
  Serious: Yes (Other)
  Sender: FDA-Public Use
  Company Number: DE-GILEAD-2019-0438019

PATIENT
  Sex: Male
  Weight: 105 kg

DRUGS (1)
  1. BIKTARVY [Suspect]
     Active Substance: BICTEGRAVIR SODIUM\EMTRICITABINE\TENOFOVIR ALAFENAMIDE FUMARATE
     Indication: HIV INFECTION
     Dosage: UNK
     Route: 065
     Dates: start: 20190118, end: 20191112

REACTIONS (7)
  - Depressed mood [Unknown]
  - Seizure [Unknown]
  - Chest discomfort [Unknown]
  - Loss of libido [Unknown]
  - Paraesthesia [Unknown]
  - Tension headache [Unknown]
  - Dyspnoea [Unknown]

NARRATIVE: CASE EVENT DATE: 20190518
